FAERS Safety Report 22619928 (Version 4)
Quarter: 2024Q3

REPORT INFORMATION
  Report Type: Report from Study
  Country: BR (occurrence: BR)
  Receive Date: 20230620
  Receipt Date: 20240701
  Transmission Date: 20241017
  Serious: Yes (Hospitalization, Other)
  Sender: TAKEDA
  Company Number: BR-TAKEDA-2023TUS058756

PATIENT
  Sex: Female

DRUGS (2)
  1. VEDOLIZUMAB [Suspect]
     Active Substance: VEDOLIZUMAB
     Indication: Colitis ulcerative
     Dosage: 300 MILLIGRAM
     Route: 042
     Dates: start: 20221230
  2. VEDOLIZUMAB [Suspect]
     Active Substance: VEDOLIZUMAB
     Indication: Crohn^s disease
     Dosage: 300 MILLIGRAM, Q4WEEKS
     Route: 042
     Dates: start: 202301

REACTIONS (9)
  - Colitis ulcerative [Unknown]
  - Hodgkin^s disease [Unknown]
  - Malnutrition [Unknown]
  - Dehydration [Unknown]
  - Inappropriate schedule of product administration [Unknown]
  - Inflammation [Unknown]
  - Product preparation error [Unknown]
  - Product availability issue [Unknown]
  - Drug ineffective [Unknown]
